FAERS Safety Report 7427098-0 (Version None)
Quarter: 2011Q2

REPORT INFORMATION
  Report Type: 
  Country: None (occurrence: None)
  Receive Date: 20110420
  Receipt Date: 20110412
  Transmission Date: 20111010
  Serious: Yes (Hospitalization)
  Sender: FDA-Public Use
  Company Number: US-US-EMD SERONO, INC.-7053871

PATIENT
  Sex: Female

DRUGS (3)
  1. REBIF [Suspect]
     Dates: start: 20110326, end: 20110326
  2. OTHER UNSPECIFIED MEDICATION [Concomitant]
  3. REBIF [Suspect]
     Indication: RELAPSING-REMITTING MULTIPLE SCLEROSIS
     Dates: start: 20030101, end: 20040101

REACTIONS (2)
  - SEPSIS [None]
  - INCISION SITE CELLULITIS [None]
